FAERS Safety Report 4480164-4 (Version None)
Quarter: 2004Q4

REPORT INFORMATION
  Report Type: 
  Country: None (occurrence: None)
  Receive Date: 20041020
  Receipt Date: 20041011
  Transmission Date: 20050328
  Serious: Yes (Life-Threatening, Hospitalization)
  Sender: FDA-Public Use
  Company Number: BR-MERCK-0410BRA00349

PATIENT
  Age: 29 Year
  Sex: Female

DRUGS (3)
  1. VIOXX [Suspect]
     Indication: MUSCLE CONTRACTURE
     Route: 065
     Dates: start: 20040728, end: 20040731
  2. VIOXX [Suspect]
     Indication: POST PROCEDURAL PAIN
     Route: 065
     Dates: start: 20040728, end: 20040731
  3. ACETAMINOPHEN [Concomitant]
     Route: 065
     Dates: start: 20040728

REACTIONS (3)
  - APPENDICITIS [None]
  - LUNG INFECTION [None]
  - POSTPARTUM DEPRESSION [None]
